FAERS Safety Report 4490173-7 (Version None)
Quarter: 2004Q4

REPORT INFORMATION
  Report Type: 
  Country: None (occurrence: None)
  Receive Date: 20041027
  Receipt Date: 20041019
  Transmission Date: 20050328
  Serious: Yes (Hospitalization)
  Sender: FDA-Public Use
  Company Number: CIP04002235

PATIENT
  Age: 80 Year
  Sex: Female

DRUGS (8)
  1. ACTONEL [Suspect]
     Dosage: 35 MG, ONCE WEEKLY, ORAL
     Route: 048
  2. PREMARIN [Concomitant]
  3. SYNTHROID [Concomitant]
  4. LISINOPRIL [Concomitant]
  5. ARICEPT [Concomitant]
  6. MULTIVIT (VITAMINS NOS) [Concomitant]
  7. CALCIUM [Concomitant]
  8. NAMENDA (MEMANTINE HYDROCHLORIDE) [Concomitant]

REACTIONS (2)
  - BLOOD PRESSURE DECREASED [None]
  - HEART RATE DECREASED [None]
